FAERS Safety Report 16251002 (Version 1)
Quarter: 2019Q2

REPORT INFORMATION
  Report Type: Spontaneous
  Country: US (occurrence: US)
  Receive Date: 20190429
  Receipt Date: 20190429
  Transmission Date: 20190711
  Serious: No
  Sender: FDA-Public Use
  Company Number: US-PFIZER INC-2019176491

PATIENT
  Age: 56 Year
  Sex: Female
  Weight: 77.11 kg

DRUGS (5)
  1. LYRICA [Suspect]
     Active Substance: PREGABALIN
     Indication: FIBROMYALGIA
     Dosage: 50 MG, 2X/DAY
     Dates: start: 2019
  2. LYRICA [Suspect]
     Active Substance: PREGABALIN
     Indication: BACK PAIN
     Dosage: 75 MG, 2X/DAY
     Dates: start: 20190320
  3. AMITRIPTYLINE [Concomitant]
     Active Substance: AMITRIPTYLINE
     Indication: INSOMNIA
  4. AMITRIPTYLINE [Concomitant]
     Active Substance: AMITRIPTYLINE
     Indication: FIBROMYALGIA
     Dosage: 50 MG, 1X/DAY, (TWO 25MG TABLETS AT NIGHT)
  5. METHIMAZOLE. [Concomitant]
     Active Substance: METHIMAZOLE
     Indication: BASEDOW^S DISEASE
     Dosage: 5 MG, 1X/DAY

REACTIONS (2)
  - Product dispensing error [Unknown]
  - Drug ineffective [Unknown]
